FAERS Safety Report 5240456-8 (Version None)
Quarter: 2007Q1

REPORT INFORMATION
  Report Type: 
  Country: None (occurrence: None)
  Receive Date: 20070219
  Receipt Date: 20070205
  Transmission Date: 20070707
  Serious: Yes (Other)
  Sender: FDA-Public Use
  Company Number: PHBS2007BR02445

PATIENT
  Age: 18 Year
  Sex: Female
  Weight: 45 kg

DRUGS (1)
  1. METHERGINE [Suspect]
     Indication: MENSTRUAL DISORDER
     Dosage: 0.125 MG, TID
     Route: 048
     Dates: start: 20070101, end: 20070204

REACTIONS (4)
  - HEADACHE [None]
  - INSOMNIA [None]
  - NAUSEA [None]
  - SYNCOPE [None]
